FAERS Safety Report 5558375-6 (Version None)
Quarter: 2007Q4

REPORT INFORMATION
  Report Type: 
  Country: None (occurrence: None)
  Receive Date: 20071214
  Receipt Date: 20071203
  Transmission Date: 20080405
  Serious: Yes (Death, Other)
  Sender: FDA-Public Use
  Company Number: FR-PFIZER INC-2007102258

PATIENT
  Age: 62 Year
  Sex: Female

DRUGS (1)
  1. SUTENT [Suspect]
     Indication: FIBROSARCOMA
     Dosage: DAILY DOSE:50MG

REACTIONS (4)
  - COMA [None]
  - CYTOLYTIC HEPATITIS [None]
  - DISTURBANCE IN ATTENTION [None]
  - GASTROINTESTINAL HAEMORRHAGE [None]
